FAERS Safety Report 23942123 (Version 2)
Quarter: 2024Q3

REPORT INFORMATION
  Report Type: Spontaneous
  Country: DK (occurrence: DK)
  Receive Date: 20240605
  Receipt Date: 20240717
  Transmission Date: 20241016
  Serious: Yes (Other)
  Sender: MYLAN
  Company Number: DK-AMGEN-DNKSP2024098328

PATIENT
  Age: 24 Year
  Sex: Female

DRUGS (16)
  1. PREDNISOLONE [Suspect]
     Active Substance: PREDNISOLONE
     Indication: Lichen planus
     Dosage: 25 MILLIGRAM, QD (ONCE DAILY)(MODERATE EFFECT BETWEEN 10 AND 25MG; DOSE BELOW 10 MG)
     Route: 065
  2. PREDNISOLONE [Suspect]
     Active Substance: PREDNISOLONE
     Dosage: 2.5 MILLIGRAM, QD
     Route: 065
  3. AZATHIOPRINE [Suspect]
     Active Substance: AZATHIOPRINE
     Indication: Lichen planus
     Dosage: UNK
     Route: 065
     Dates: start: 202012
  4. CYCLOSPORINE [Suspect]
     Active Substance: CYCLOSPORINE
     Indication: Lichen planus
     Dosage: UNK
     Route: 065
     Dates: start: 202012
  5. TACROLIMUS [Suspect]
     Active Substance: TACROLIMUS
     Indication: Lichen planus
     Dosage: UNK
     Route: 061
  6. MYCOPHENOLATE MOFETIL [Suspect]
     Active Substance: MYCOPHENOLATE MOFETIL
     Indication: Lichen planus
     Dosage: UNK
     Route: 065
     Dates: start: 202012
  7. ADALIMUMAB [Suspect]
     Active Substance: ADALIMUMAB\ISOPROPYL ALCOHOL
     Indication: Lichen planus
     Dosage: UNK
     Route: 065
     Dates: start: 202012
  8. FLUTICASONE PROPIONATE [Suspect]
     Active Substance: FLUTICASONE PROPIONATE
     Indication: Lichen planus
     Dosage: UNK
     Route: 061
  9. FLUOCINOLONE ACETONIDE [Suspect]
     Active Substance: FLUOCINOLONE ACETONIDE
     Indication: Lichen planus
     Dosage: UNK
     Route: 061
  10. CLOBETASOL PROPIONATE [Suspect]
     Active Substance: CLOBETASOL PROPIONATE
     Indication: Lichen planus
     Dosage: UNK
     Route: 061
  11. METHOTREXATE [Suspect]
     Active Substance: METHOTREXATE
     Indication: Lichen planus
     Dosage: 15 MILLIGRAM, QW
     Route: 065
  12. ROFLUMILAST [Suspect]
     Active Substance: ROFLUMILAST
     Indication: Lichen planus
     Dosage: 500 MILLIGRAM, QD (ONCE DAILY)
     Route: 048
  13. APREMILAST [Concomitant]
     Active Substance: APREMILAST
     Indication: Lichen planus
     Dosage: UNK
     Route: 065
     Dates: start: 202012
  14. ARIPIPRAZOLE [Concomitant]
     Active Substance: ARIPIPRAZOLE
     Indication: Bipolar disorder
     Dosage: UNK
     Route: 065
  15. LAMOTRIGINE [Concomitant]
     Active Substance: LAMOTRIGINE
     Indication: Bipolar disorder
     Dosage: UNK
     Route: 065
  16. QUETIAPINE [Concomitant]
     Active Substance: QUETIAPINE
     Indication: Bipolar disorder
     Dosage: PRN (AS NEEDED AND ONLY APPROXIMATELY ONCE A MONTH)
     Route: 065

REACTIONS (8)
  - Lichen planus [Recovered/Resolved]
  - Condition aggravated [Recovered/Resolved]
  - Therapy non-responder [Unknown]
  - Decreased appetite [Unknown]
  - Nausea [Unknown]
  - Weight increased [Unknown]
  - Cushingoid [Unknown]
  - Off label use [Unknown]
